FAERS Safety Report 6491613-4 (Version None)
Quarter: 2009Q4

REPORT INFORMATION
  Report Type: 
  Country: None (occurrence: None)
  Receive Date: 20091127
  Receipt Date: 20091118
  Transmission Date: 20100525
  Serious: Yes (Hospitalization)
  Sender: FDA-Public Use
  Company Number: WSDF_00613

PATIENT
  Age: 69 Year
  Sex: Female
  Weight: 79 kg

DRUGS (1)
  1. WINRHO SDF LIQUID [Suspect]
     Indication: IDIOPATHIC THROMBOCYTOPENIC PURPURA
     Dosage: (50 PG/KG TOTAL INTRAVENOUS (NOT OTHERWISE SPECIFIED))
     Route: 042
     Dates: start: 20070205, end: 20070205

REACTIONS (6)
  - HAEMOGLOBINAEMIA [None]
  - HAEMOGLOBINURIA [None]
  - HAEMOLYSIS [None]
  - HAPTOGLOBIN DECREASED [None]
  - JAUNDICE [None]
  - PLATELET COUNT DECREASED [None]
